FAERS Safety Report 8948716 (Version 1)
Quarter: 2012Q4

REPORT INFORMATION
  Report Type: 
  Country: MX (occurrence: MX)
  Receive Date: 20121206
  Receipt Date: 20121206
  Transmission Date: 20130627
  Serious: Yes (Hospitalization)
  Sender: FDA-Public Use
  Company Number: PHHY2012MX111143

PATIENT
  Sex: Female

DRUGS (2)
  1. TRILEPTAL [Suspect]
     Indication: EPILEPSY
     Dosage: 3 DF, Daily
     Route: 048
     Dates: start: 20121020
  2. CO-DIOVAN [Suspect]
     Dosage: 1 DF, Daily
     Dates: start: 20120221

REACTIONS (1)
  - Hernia pain [Not Recovered/Not Resolved]
